FAERS Safety Report 7463408-6 (Version None)
Quarter: 2011Q2

REPORT INFORMATION
  Report Type: 
  Country: None (occurrence: None)
  Receive Date: 20110506
  Receipt Date: 20110429
  Transmission Date: 20111010
  Serious: Yes (Hospitalization)
  Sender: FDA-Public Use
  Company Number: A0926165A

PATIENT
  Age: 85 Year
  Sex: Male

DRUGS (12)
  1. FOLIC ACID [Concomitant]
  2. AMLODIPINE BESYLATE [Suspect]
     Route: 065
  3. IBUPROFEN [Concomitant]
  4. SENNA-MINT WAF [Suspect]
  5. TAMSULOSIN HCL [Suspect]
     Route: 065
  6. SPIRIVA [Suspect]
     Route: 055
  7. MULTI-VITAMIN [Concomitant]
  8. VITAMIN B-12 [Suspect]
     Route: 065
  9. METOPROLOL SUCCINATE [Suspect]
     Route: 065
  10. UNKNOWN MEDICATION [Concomitant]
  11. ADVAIR DISKUS 100/50 [Suspect]
     Indication: CHRONIC OBSTRUCTIVE PULMONARY DISEASE
     Route: 055
  12. PROAIR HFA [Suspect]
     Route: 055

REACTIONS (3)
  - CONVULSION [None]
  - ILL-DEFINED DISORDER [None]
  - DYSPNOEA [None]
